FAERS Safety Report 16535613 (Version 2)
Quarter: 2019Q3

REPORT INFORMATION
  Report Type: Spontaneous
  Country: US (occurrence: US)
  Receive Date: 20190705
  Receipt Date: 20190709
  Transmission Date: 20191004
  Serious: No
  Sender: FDA-Public Use
  Company Number: US-PFIZER INC-2019285844

PATIENT
  Sex: Male

DRUGS (2)
  1. TAMOXIFEN [TAMOXIFEN CITRATE] [Suspect]
     Active Substance: TAMOXIFEN CITRATE
     Dosage: UNK
  2. IBRANCE [Suspect]
     Active Substance: PALBOCICLIB
     Indication: BREAST CANCER METASTATIC
     Dosage: UNK

REACTIONS (2)
  - Product use issue [Unknown]
  - Off label use [Unknown]
